FAERS Safety Report 7401588-9 (Version None)
Quarter: 2011Q2

REPORT INFORMATION
  Report Type: 
  Country: None (occurrence: None)
  Receive Date: 20110408
  Receipt Date: 20110331
  Transmission Date: 20111010
  Serious: No
  Sender: FDA-Public Use
  Company Number: US-BIOGENIDEC-2010BI023670

PATIENT
  Sex: Female

DRUGS (5)
  1. DILTIAZEM HCL [Concomitant]
     Indication: HYPERTENSION
  2. TYSABRI [Suspect]
     Indication: MULTIPLE SCLEROSIS
     Route: 042
     Dates: start: 20091211, end: 20100101
  3. LEXAPRO [Concomitant]
     Indication: MOOD SWINGS
  4. NEXIUM [Concomitant]
     Indication: HELICOBACTER INFECTION
  5. TYSABRI [Suspect]
     Route: 042
     Dates: start: 20100201, end: 20100423

REACTIONS (17)
  - INSOMNIA [None]
  - PARAESTHESIA [None]
  - HYPOAESTHESIA [None]
  - TREMOR [None]
  - HEADACHE [None]
  - BLOOD COUNT ABNORMAL [None]
  - PROCEDURAL PAIN [None]
  - ANAEMIA [None]
  - DIZZINESS [None]
  - MOBILITY DECREASED [None]
  - PAIN IN EXTREMITY [None]
  - ANXIETY [None]
  - FATIGUE [None]
  - COORDINATION ABNORMAL [None]
  - MUSCULOSKELETAL PAIN [None]
  - BONE PAIN [None]
  - NECK PAIN [None]
